FAERS Safety Report 7231916-9 (Version None)
Quarter: 2011Q1

REPORT INFORMATION
  Report Type: 
  Country: None (occurrence: None)
  Receive Date: 20110118
  Receipt Date: 20110112
  Transmission Date: 20110831
  Serious: Yes (Other)
  Sender: FDA-Public Use
  Company Number: US-PFIZER INC-2011008343

PATIENT
  Sex: Female

DRUGS (3)
  1. SPIRONOLACTONE [Suspect]
     Indication: ATRIAL FIBRILLATION
     Dosage: 25 MG, 1X/DAY
     Route: 048
     Dates: start: 20100101
  2. DIGOXIN [Suspect]
     Indication: ATRIAL FIBRILLATION
     Dosage: UNK
     Dates: start: 20100101
  3. LYRICA [Suspect]
     Indication: CONVULSION
     Dosage: UNK
     Route: 048

REACTIONS (7)
  - ATRIAL FIBRILLATION [None]
  - SOMNOLENCE [None]
  - ONYCHOCLASIS [None]
  - PNEUMONIA [None]
  - ONYCHALGIA [None]
  - INCONTINENCE [None]
  - NAIL DISORDER [None]
